FAERS Safety Report 19657773 (Version 1)
Quarter: 2021Q3

REPORT INFORMATION
  Report Type: Spontaneous
  Country: IN (occurrence: IN)
  Receive Date: 20210804
  Receipt Date: 20210804
  Transmission Date: 20211014
  Serious: Yes (Hospitalization, Other)
  Sender: FDA-Public Use
  Company Number: IN-UCBSA-2021036678

PATIENT

DRUGS (2)
  1. KEPPRA [Suspect]
     Active Substance: LEVETIRACETAM
     Indication: EPILEPSY
     Dosage: UNK
     Route: 064
  2. FOLIC ACID. [Concomitant]
     Active Substance: FOLIC ACID
     Indication: VITAMIN SUPPLEMENTATION
     Dosage: UNK
     Route: 064

REACTIONS (9)
  - Metabolic disorder [Unknown]
  - Foetal distress syndrome [Unknown]
  - Apgar score low [Unknown]
  - Hypoglycaemia [Unknown]
  - Respiratory distress [Unknown]
  - Maternal exposure during pregnancy [Unknown]
  - Small for dates baby [Unknown]
  - Infection [Unknown]
  - Premature baby [Unknown]
